FAERS Safety Report 5044522-1 (Version None)
Quarter: 2006Q3

REPORT INFORMATION
  Report Type: 
  Country: None (occurrence: None)
  Receive Date: 20060706
  Receipt Date: 20060627
  Transmission Date: 20061208
  Serious: Yes (Other)
  Sender: FDA-Public Use
  Company Number: CO-BRISTOL-MYERS SQUIBB COMPANY-13425012

PATIENT
  Age: 53 Year
  Sex: Male

DRUGS (4)
  1. CISPLATIN [Suspect]
     Indication: GASTRIC CANCER
     Route: 041
     Dates: start: 20060522, end: 20060522
  2. FLUOROURACIL [Suspect]
     Indication: GASTRIC CANCER
     Route: 041
     Dates: start: 20060522, end: 20060527
  3. PARACETAMOL [Concomitant]
     Indication: PAIN
     Route: 048
  4. ALPRAZOLAM [Concomitant]
     Indication: INITIAL INSOMNIA
     Route: 048

REACTIONS (1)
  - RENAL FAILURE ACUTE [None]
